FAERS Safety Report 20093001 (Version 1)
Quarter: 2021Q4

REPORT INFORMATION
  Report Type: Report from Study
  Country: US (occurrence: US)
  Receive Date: 20211120
  Receipt Date: 20211120
  Transmission Date: 20220303
  Serious: Yes (Hospitalization)
  Sender: FDA-Public Use
  Company Number: US-TAKEDA-2021TUS045428

PATIENT
  Age: 79 Year
  Sex: Male
  Weight: 80.272 kg

DRUGS (43)
  1. HUMAN IMMUNOGLOBULIN G [Suspect]
     Active Substance: HUMAN IMMUNOGLOBULIN G
     Indication: Chronic inflammatory demyelinating polyradiculoneuropathy
     Dosage: 75 GRAM, Q3WEEKS
     Route: 042
     Dates: start: 20210301
  2. HUMAN IMMUNOGLOBULIN G [Suspect]
     Active Substance: HUMAN IMMUNOGLOBULIN G
     Indication: Congenital neuropathy
     Dosage: 1000 MILLIGRAM/KILOGRAM, Q3WEEKS
     Route: 042
     Dates: start: 20210301
  3. ACETAMINOPHEN [Concomitant]
     Active Substance: ACETAMINOPHEN
  4. DIPHENHYDRAMINE [Concomitant]
     Active Substance: DIPHENHYDRAMINE
  5. HEPARIN [Concomitant]
     Active Substance: HEPARIN SODIUM
  6. LIDOCAINE [Concomitant]
     Active Substance: LIDOCAINE
  7. SODIUM CHLORIDE [Concomitant]
     Active Substance: SODIUM CHLORIDE
  8. EPINEPHRINE [Concomitant]
     Active Substance: EPINEPHRINE
  9. ASPIRIN [Concomitant]
     Active Substance: ASPIRIN
  10. BRILINTA [Concomitant]
     Active Substance: TICAGRELOR
  11. ALPRAZOLAM [Concomitant]
     Active Substance: ALPRAZOLAM
  12. GABAPENTIN [Concomitant]
     Active Substance: GABAPENTIN
  13. SIMETHICONE (DIMETHICONE) [Concomitant]
     Active Substance: DIMETHICONE
  14. BUDESONIDE [Concomitant]
     Active Substance: BUDESONIDE
  15. SYNTHROID [Concomitant]
     Active Substance: LEVOTHYROXINE SODIUM
  16. LOPERAMIDE [Concomitant]
     Active Substance: LOPERAMIDE
  17. LEVOTHYROXINE SODIUM [Concomitant]
     Active Substance: LEVOTHYROXINE SODIUM
  18. TOBRAMYCIN [Concomitant]
     Active Substance: TOBRAMYCIN
  19. ALAWAY [Concomitant]
     Active Substance: KETOTIFEN FUMARATE
  20. FUROSEMIDE [Concomitant]
     Active Substance: FUROSEMIDE
  21. PREDNISONE [Concomitant]
     Active Substance: PREDNISONE
  22. SYMBICORT [Concomitant]
     Active Substance: BUDESONIDE\FORMOTEROL FUMARATE DIHYDRATE
  23. MORPHINE [Concomitant]
     Active Substance: MORPHINE
  24. OMEPRAZOLE [Concomitant]
     Active Substance: OMEPRAZOLE
  25. KAOPECTATE [Concomitant]
     Active Substance: BISMUTH SUBSALICYLATE
  26. NYSTATIN [Concomitant]
     Active Substance: NYSTATIN
  27. BROVANA [Concomitant]
     Active Substance: ARFORMOTEROL TARTRATE
  28. PREGABALIN [Concomitant]
     Active Substance: PREGABALIN
  29. LANTUS [Concomitant]
     Active Substance: INSULIN GLARGINE
  30. CARVEDILOL [Concomitant]
     Active Substance: CARVEDILOL
  31. OZEMPIC [Concomitant]
     Active Substance: SEMAGLUTIDE
  32. BACLOFEN [Concomitant]
     Active Substance: BACLOFEN
  33. MYRBETRIQ [Concomitant]
     Active Substance: MIRABEGRON
  34. FLUOXETINE [Concomitant]
     Active Substance: FLUOXETINE HYDROCHLORIDE
  35. POTASSIUM [Concomitant]
     Active Substance: POTASSIUM
  36. GENTAMICIN [Concomitant]
     Active Substance: GENTAMICIN
  37. CIPROFLOXACIN [Concomitant]
     Active Substance: CIPROFLOXACIN
  38. OXYGEN [Concomitant]
     Active Substance: OXYGEN
  39. OXYCODONE AND ACETAMINOPHEN [Concomitant]
     Active Substance: ACETAMINOPHEN\OXYCODONE HYDROCHLORIDE
  40. ROSUVASTATIN [Concomitant]
     Active Substance: ROSUVASTATIN
  41. PFIZER-BIONTECH COVID-19 VACCINE [Concomitant]
     Active Substance: TOZINAMERAN
  42. FLUOXETINE HYDROCHLORIDE [Concomitant]
     Active Substance: FLUOXETINE HYDROCHLORIDE
  43. KETOTIFEN [Concomitant]
     Active Substance: KETOTIFEN

REACTIONS (8)
  - Giant cell arteritis [Unknown]
  - Pain in extremity [Unknown]
  - Insomnia [Unknown]
  - Fatigue [Unknown]
  - Headache [Recovered/Resolved]
  - Localised infection [Unknown]
  - Oedema peripheral [Unknown]
  - Product use in unapproved indication [Unknown]

NARRATIVE: CASE EVENT DATE: 20210716
